FAERS Safety Report 9847108 (Version 2)
Quarter: 2014Q1

REPORT INFORMATION
  Report Type: Spontaneous
  Country: US (occurrence: US)
  Receive Date: 20140127
  Receipt Date: 20140211
  Transmission Date: 20141002
  Serious: No
  Sender: FDA-Public Use
  Company Number: US-GILEAD-2014-0092881

PATIENT
  Age: 68 Year
  Sex: Male

DRUGS (3)
  1. SOVALDI [Suspect]
     Indication: CHRONIC HEPATITIS C
     Dosage: 400 MG, UNK
     Route: 065
     Dates: start: 20131226
  2. RIBAVIRIN [Suspect]
     Indication: CHRONIC HEPATITIS C
     Dosage: 400 MG, BID
     Route: 065
  3. RIBAVIRIN [Suspect]
     Dosage: 1200 MG, QD
     Route: 065

REACTIONS (3)
  - Lethargy [Unknown]
  - Nausea [Unknown]
  - Fatigue [Unknown]
